FAERS Safety Report 7883991-6 (Version None)
Quarter: 2011Q4

REPORT INFORMATION
  Report Type: 
  Country: None (occurrence: None)
  Receive Date: 20111102
  Receipt Date: 20111024
  Transmission Date: 20120403
  Serious: Yes (Other)
  Sender: FDA-Public Use
  Company Number: PHHY2011BR94827

PATIENT
  Sex: Female
  Weight: 68 kg

DRUGS (3)
  1. FLUIR [Suspect]
  2. LOSARTAN POTASSIUM [Concomitant]
     Indication: BLOOD PRESSURE INCREASED
     Dosage: 1 DF, QD
     Route: 048
  3. FORADIL [Suspect]
     Indication: BRONCHITIS
     Dosage: 2 DF, 2 INHALATION A DAY (IN THE MORNING AND AT NIGHT)

REACTIONS (4)
  - HEMIPLEGIA [None]
  - DYSPNOEA [None]
  - DYSPNOEA EXERTIONAL [None]
  - WHEEZING [None]
